FAERS Safety Report 6533000-6 (Version None)
Quarter: 2010Q1

REPORT INFORMATION
  Report Type: 
  Country: None (occurrence: None)
  Receive Date: 20100111
  Receipt Date: 20100104
  Transmission Date: 20100710
  Serious: Yes (Other)
  Sender: FDA-Public Use
  Company Number: PHEH2010US00464

PATIENT
  Sex: Female

DRUGS (1)
  1. DESFERAL [Suspect]

REACTIONS (3)
  - HYPOCALCAEMIA [None]
  - PARATHYROID DISORDER [None]
  - PARATHYROIDECTOMY [None]
